FAERS Safety Report 9614303 (Version 1)
Quarter: 2013Q4

REPORT INFORMATION
  Report Type: Spontaneous
  Country: US (occurrence: None)
  Receive Date: 20131008
  Receipt Date: 20131008
  Transmission Date: 20140711
  Serious: Yes (Hospitalization)
  Sender: FDA-Public Use
  Company Number: None

PATIENT
  Age: 88 Year
  Sex: Female
  Weight: 55.9 kg

DRUGS (2)
  1. CYMBALTA [Suspect]
     Indication: DEPRESSION
     Dates: start: 20130418, end: 20130423
  2. CYMBALTA [Suspect]
     Indication: PAIN
     Dates: start: 20130418, end: 20130423

REACTIONS (3)
  - Asthenia [None]
  - Fall [None]
  - Hyponatraemia [None]
